FAERS Safety Report 17480427 (Version 2)
Quarter: 2020Q2

REPORT INFORMATION
  Report Type: Spontaneous
  Country: US (occurrence: US)
  Receive Date: 20200229
  Receipt Date: 20200430
  Transmission Date: 20200713
  Serious: Yes (Hospitalization, Other)
  Sender: FDA-Public Use
  Company Number: US-BRISTOL-MYERS SQUIBB COMPANY-BMS-2019-126482

PATIENT
  Age: 49 Year
  Sex: Female

DRUGS (13)
  1. ZOLEDRONIC [Concomitant]
     Active Substance: ZOLEDRONIC ACID
     Indication: METASTASES TO BONE
     Dosage: 4 MILLIGRAM EVERY 4 WEEKS
     Route: 042
     Dates: start: 20171106
  2. CERAVE ITCH RELIEF MOISTURIZING [Concomitant]
     Active Substance: PRAMOXINE HYDROCHLORIDE
     Indication: RASH PRURITIC
     Dosage: 1 DOSAGE FORM, PRN
     Route: 061
     Dates: start: 20180207
  3. LORATADINE. [Concomitant]
     Active Substance: LORATADINE
     Indication: PAIN PROPHYLAXIS
     Dosage: 10 MILLIGRAM, PRN
     Route: 048
     Dates: start: 20171106
  4. MULTIVITAMIN (16) [Concomitant]
     Active Substance: VITAMINS
     Indication: VITAMIN SUPPLEMENTATION
     Dosage: 1 DOSAGE FORM, QD
     Route: 048
  5. NIVOLUMAB [Suspect]
     Active Substance: NIVOLUMAB
     Indication: NEOPLASM MALIGNANT
     Dosage: UNK
     Route: 065
     Dates: start: 20191016, end: 20191105
  6. DIPHENHYDRAMINE. [Concomitant]
     Active Substance: DIPHENHYDRAMINE
     Indication: PRODUCT USED FOR UNKNOWN INDICATION
     Dosage: 50 MILLIGRAM, PRN
     Route: 042
     Dates: start: 20171220
  7. FAMOTIDINE. [Concomitant]
     Active Substance: FAMOTIDINE
     Indication: PROPHYLAXIS
     Dosage: 20 MILLIGRAM, Q3WK
     Route: 042
  8. OXYCODONE HYDROCHLORIDE. [Concomitant]
     Active Substance: OXYCODONE HYDROCHLORIDE
     Indication: PAIN IN EXTREMITY
     Dosage: 5 MILLIGRAM, QID
     Route: 048
     Dates: start: 20190113
  9. MELATONIN [Concomitant]
     Active Substance: MELATONIN
     Indication: INSOMNIA
     Dosage: 5 MILLIGRAM, QD
     Route: 048
     Dates: start: 20180411
  10. ACETAMINOPHEN. [Concomitant]
     Active Substance: ACETAMINOPHEN
     Indication: PROPHYLAXIS
     Dosage: 650 MILLIGRAM, Q3WK
     Route: 048
     Dates: start: 20171229
  11. IPILIMUMAB [Suspect]
     Active Substance: IPILIMUMAB
     Indication: NEOPLASM MALIGNANT
     Dosage: UNK
     Route: 065
     Dates: start: 20191016, end: 20191105
  12. ONDANSETRON [Concomitant]
     Active Substance: ONDANSETRON
     Indication: NAUSEA
     Dosage: 8 MILLIGRAM, PRN
     Route: 048
     Dates: start: 201810
  13. DIPHENHYDRAMINE. [Concomitant]
     Active Substance: DIPHENHYDRAMINE
     Indication: RASH PRURITIC
     Dosage: 25 MILLIGRAM, PRN
     Route: 048
     Dates: start: 20171019

REACTIONS (11)
  - Pulmonary embolism [Unknown]
  - Vaginal haemorrhage [Unknown]
  - Bundle branch block [Unknown]
  - Malignant neoplasm progression [Unknown]
  - Pain in extremity [Recovered/Resolved]
  - Tumour thrombosis [Unknown]
  - Abdominal pain upper [Unknown]
  - Deep vein thrombosis [Unknown]
  - Sinus tachycardia [Unknown]
  - Peripheral swelling [Recovered/Resolved]
  - Fluid overload [Recovered/Resolved]

NARRATIVE: CASE EVENT DATE: 20191115
